FAERS Safety Report 5322224-1 (Version None)
Quarter: 2007Q2

REPORT INFORMATION
  Report Type: 
  Country: None (occurrence: None)
  Receive Date: 20070511
  Receipt Date: 20070502
  Transmission Date: 20071010
  Serious: Yes (Hospitalization)
  Sender: FDA-Public Use
  Company Number: DE-ROCHE-495920

PATIENT
  Age: 62 Year
  Sex: Female
  Weight: 85 kg

DRUGS (6)
  1. KEVATRIL [Suspect]
     Indication: BREAST CANCER
     Route: 042
     Dates: start: 20070411, end: 20070411
  2. FLUOROURACIL [Suspect]
     Indication: BREAST CANCER
     Route: 042
     Dates: start: 20070411, end: 20070411
  3. EPIRUBICIN [Suspect]
     Indication: BREAST CANCER
     Route: 042
     Dates: start: 20070411, end: 20070411
  4. CYCLOPHOSPHAMIDE [Suspect]
     Indication: BREAST CANCER
     Route: 042
     Dates: start: 20070411, end: 20070411
  5. MESNA [Suspect]
     Indication: BREAST CANCER
     Route: 042
     Dates: start: 20070411, end: 20070411
  6. FORTECORTIN [Suspect]
     Indication: BREAST CANCER
     Route: 042
     Dates: start: 20070411, end: 20070411

REACTIONS (3)
  - CIRCULATORY COLLAPSE [None]
  - NAUSEA [None]
  - VOMITING [None]
